FAERS Safety Report 6842090-2 (Version None)
Quarter: 2010Q3

REPORT INFORMATION
  Report Type: 
  Country: None (occurrence: None)
  Receive Date: 20100714
  Receipt Date: 20070720
  Transmission Date: 20110219
  Serious: No
  Sender: FDA-Public Use
  Company Number: US-PFIZER INC-2007061849

PATIENT
  Sex: Male
  Weight: 129.54 kg

DRUGS (5)
  1. CHANTIX [Suspect]
     Indication: SMOKING CESSATION THERAPY
     Dates: start: 20070101
  2. LEXAPRO [Concomitant]
  3. NORVASC [Concomitant]
  4. CARDURA [Concomitant]
  5. LAMICTAL [Concomitant]

REACTIONS (1)
  - FLATULENCE [None]
